FAERS Safety Report 6204582-9 (Version None)
Quarter: 2009Q2

REPORT INFORMATION
  Report Type: 
  Country: None (occurrence: None)
  Receive Date: 20090522
  Receipt Date: 20090511
  Transmission Date: 20091009
  Serious: Yes (Other)
  Sender: FDA-Public Use
  Company Number: 2009211509

PATIENT
  Sex: Female

DRUGS (1)
  1. FRAGMIN [Suspect]
     Dosage: 5000 IU, SUBCUTANEOUS
     Route: 058

REACTIONS (2)
  - CARDIOVASCULAR DISORDER [None]
  - PERIPHERAL VASCULAR DISORDER [None]
